FAERS Safety Report 8189490-9 (Version None)
Quarter: 2012Q1

REPORT INFORMATION
  Report Type: 
  Country: None (occurrence: None)
  Receive Date: 20120307
  Receipt Date: 20120228
  Transmission Date: 20120608
  Serious: Yes (Other)
  Sender: FDA-Public Use
  Company Number: US-BAYER-2012-019971

PATIENT
  Sex: Female

DRUGS (2)
  1. YASMIN [Suspect]
     Dosage: UNK
     Route: 048
     Dates: start: 20020101
  2. YAZ [Suspect]
     Dosage: UNK
     Route: 048

REACTIONS (4)
  - ISCHAEMIC STROKE [None]
  - CHOLELITHIASIS [None]
  - PANCREATITIS CHRONIC [None]
  - PAIN [None]
